FAERS Safety Report 22177348 (Version 1)
Quarter: 2023Q2

REPORT INFORMATION
  Report Type: Spontaneous
  Country: CA (occurrence: CA)
  Receive Date: 20230405
  Receipt Date: 20230405
  Transmission Date: 20230721
  Serious: No
  Sender: FDA-Public Use
  Company Number: CA-CHEMOCENTRYX, INC.-2023CACCXI0927

PATIENT

DRUGS (1)
  1. TAVNEOS [Suspect]
     Active Substance: AVACOPAN
     Indication: Product used for unknown indication
     Dosage: (10 MG  X 3) 3 CAPS TWICE DAILY (30 MG,2 IN 1 D)
     Route: 048
     Dates: start: 202301, end: 20230218

REACTIONS (2)
  - Peripheral swelling [Unknown]
  - Fluid retention [Unknown]
